FAERS Safety Report 15918266 (Version 1)
Quarter: 2019Q1

REPORT INFORMATION
  Report Type: Report from Study
  Country: GB (occurrence: GB)
  Receive Date: 20190205
  Receipt Date: 20190205
  Transmission Date: 20190417
  Serious: Yes (Other)
  Sender: FDA-Public Use
  Company Number: PHHY2019GB023883

PATIENT
  Sex: Female

DRUGS (1)
  1. SANDOSTATIN LAR DEPOT [Suspect]
     Active Substance: OCTREOTIDE ACETATE
     Indication: NEUROENDOCRINE TUMOUR
     Dosage: 30 MG (EVERY 21 DAYS), UNK
     Route: 030
     Dates: start: 20170301

REACTIONS (3)
  - Lower respiratory tract infection [Unknown]
  - Ear infection [Unknown]
  - Inappropriate schedule of product administration [Unknown]
